FAERS Safety Report 12302365 (Version 1)
Quarter: 2016Q2

REPORT INFORMATION
  Report Type: Spontaneous
  Country: PL (occurrence: PL)
  Receive Date: 20160425
  Receipt Date: 20160425
  Transmission Date: 20160815
  Serious: Yes (Other)
  Sender: FDA-Public Use
  Company Number: PL-HQ SPECIALTY-PL-2016INT000196

PATIENT
  Age: 58 Year
  Sex: Male

DRUGS (3)
  1. METOPROLOL. [Concomitant]
     Active Substance: METOPROLOL
     Indication: TACHYCARDIA
     Dosage: 25 MG, BID
  2. CISPLATIN. [Suspect]
     Active Substance: CISPLATIN
     Indication: NEUROENDOCRINE CARCINOMA METASTATIC
     Dosage: 25 MG/M2, DAYS 1-3
  3. ETOPOSIDE. [Concomitant]
     Active Substance: ETOPOSIDE
     Indication: NEUROENDOCRINE CARCINOMA METASTATIC
     Dosage: 100 MG/M2, DAYS 1-3

REACTIONS (4)
  - Chest discomfort [Unknown]
  - Dyspnoea at rest [Unknown]
  - Cardiotoxicity [Unknown]
  - Bradycardia [Unknown]
